FAERS Safety Report 12441883 (Version 1)
Quarter: 2016Q2

REPORT INFORMATION
  Report Type: Spontaneous
  Country: US (occurrence: US)
  Receive Date: 20160607
  Receipt Date: 20160607
  Transmission Date: 20160815
  Serious: Yes (Other)
  Sender: FDA-Public Use
  Company Number: US-NOVOPROD-494756

PATIENT
  Age: 63 Year
  Sex: Male
  Weight: 97.7 kg

DRUGS (1)
  1. NOVOLOG [Suspect]
     Active Substance: INSULIN ASPART
     Indication: TYPE 2 DIABETES MELLITUS
     Dosage: SLIDING SCALE BEFORE MEALS THREE TIMES A DAY
     Route: 058
     Dates: start: 1995

REACTIONS (2)
  - Renal cancer [Recovered/Resolved with Sequelae]
  - Renal cancer [Recovered/Resolved]

NARRATIVE: CASE EVENT DATE: 2003
